FAERS Safety Report 6628750-7 (Version None)
Quarter: 2010Q1

REPORT INFORMATION
  Report Type: 
  Country: None (occurrence: None)
  Receive Date: 20100311
  Receipt Date: 20100305
  Transmission Date: 20100710
  Serious: Yes (Death, Other)
  Sender: FDA-Public Use
  Company Number: TR-ELI_LILLY_AND_COMPANY-TR201003001651

PATIENT
  Sex: Male

DRUGS (5)
  1. HUMULIN N [Suspect]
     Indication: DIABETES MELLITUS
     Dosage: 12 U, EACH MORNING
     Route: 058
     Dates: start: 20050305
  2. HUMULIN N [Suspect]
     Dosage: 10 U, EACH EVENING
     Route: 058
     Dates: start: 20050305
  3. LANSOPRAZOL [Concomitant]
     Dosage: UNK, UNKNOWN
  4. VASTAREL [Concomitant]
     Dosage: UNK, UNKNOWN
  5. VALSARTAN/HYDROCHLOORTHIAZIDE [Concomitant]
     Dosage: UNK, UNKNOWN

REACTIONS (4)
  - COMA [None]
  - HYPERGLYCAEMIA [None]
  - LUNG DISORDER [None]
  - RENAL DISORDER [None]
